FAERS Safety Report 5678021-0 (Version None)
Quarter: 2008Q1

REPORT INFORMATION
  Report Type: 
  Country: None (occurrence: None)
  Receive Date: 20080319
  Receipt Date: 20080310
  Transmission Date: 20080703
  Serious: Yes (Other)
  Sender: FDA-Public Use
  Company Number: 024821

PATIENT
  Sex: Male
  Weight: 95.2 kg

DRUGS (5)
  1. ADDERALL 10 [Suspect]
     Indication: ATTENTION DEFICIT/HYPERACTIVITY DISORDER
     Dosage: 30 MG, TID, ORAL
     Route: 048
     Dates: start: 19870101
  2. ADDERALL XR 20 [Suspect]
     Indication: ATTENTION DEFICIT/HYPERACTIVITY DISORDER
     Dosage: 30 MG, TID, ORAL
     Route: 048
     Dates: start: 19870101
  3. KLONOPIN [Concomitant]
  4. SOMA [Concomitant]
  5. HYDROCODONE (HYDROCODONE) [Concomitant]

REACTIONS (15)
  - ABNORMAL BEHAVIOUR [None]
  - ANXIETY [None]
  - CHEST PAIN [None]
  - CONVULSION [None]
  - DELUSION [None]
  - EMOTIONAL DISORDER [None]
  - ENERGY INCREASED [None]
  - IMPRISONMENT [None]
  - IMPULSIVE BEHAVIOUR [None]
  - MOOD ALTERED [None]
  - MULTIPLE INJURIES [None]
  - ROAD TRAFFIC ACCIDENT [None]
  - SKIN DISCOLOURATION [None]
  - THYROXINE DECREASED [None]
  - TRI-IODOTHYRONINE DECREASED [None]
